FAERS Safety Report 13213140 (Version 1)
Quarter: 2017Q1

REPORT INFORMATION
  Report Type: Spontaneous
  Country: US (occurrence: US)
  Receive Date: 20170209
  Receipt Date: 20170209
  Transmission Date: 20170428
  Serious: No
  Sender: FDA-Public Use
  Company Number: US-ALLERGAN-1674132US

PATIENT
  Age: 36 Year
  Sex: Female
  Weight: 63.49 kg

DRUGS (9)
  1. JUVEDERM ULTRA XC [Concomitant]
     Active Substance: HYALURONIC ACID\LIDOCAINE HYDROCHLORIDE
     Indication: SKIN WRINKLING
  2. JUVEDERM ULTRA XC [Concomitant]
     Active Substance: HYALURONIC ACID\LIDOCAINE HYDROCHLORIDE
     Indication: SKIN WRINKLING
     Dosage: 4 ML, SINGLE
     Dates: start: 20161024, end: 20161024
  3. BOTOX [Suspect]
     Active Substance: ONABOTULINUMTOXINA
     Indication: SKIN WRINKLING
     Dosage: 2 UNITS, SINGLE
     Route: 030
     Dates: start: 20161024, end: 20161024
  4. BOTOX [Suspect]
     Active Substance: ONABOTULINUMTOXINA
     Indication: SKIN WRINKLING
  5. JUVEDERM ULTRA XC [Concomitant]
     Active Substance: HYALURONIC ACID\LIDOCAINE HYDROCHLORIDE
     Indication: SKIN WRINKLING
  6. JUVEDERM ULTRA XC [Concomitant]
     Active Substance: HYALURONIC ACID\LIDOCAINE HYDROCHLORIDE
     Indication: SKIN WRINKLING
     Dosage: UNK, SINGLE
     Dates: start: 20161024, end: 20161024
  7. LEVOTHYROXINE. [Concomitant]
     Active Substance: LEVOTHYROXINE
     Dosage: UNK
  8. BOTOX [Suspect]
     Active Substance: ONABOTULINUMTOXINA
     Indication: SKIN WRINKLING
     Dosage: UNK
     Route: 030
     Dates: start: 20161024, end: 20161024
  9. BOTOX [Suspect]
     Active Substance: ONABOTULINUMTOXINA
     Indication: SKIN WRINKLING

REACTIONS (8)
  - Pallor [Unknown]
  - Off label use [Unknown]
  - Arterial occlusive disease [Recovered/Resolved with Sequelae]
  - Erythema [Not Recovered/Not Resolved]
  - Milia [Unknown]
  - Contusion [Unknown]
  - Burning sensation [Unknown]
  - Facial pain [Unknown]

NARRATIVE: CASE EVENT DATE: 2016
